FAERS Safety Report 5236723-4 (Version None)
Quarter: 2007Q1

REPORT INFORMATION
  Report Type: 
  Country: None (occurrence: None)
  Receive Date: 20070209
  Receipt Date: 20070130
  Transmission Date: 20070707
  Serious: Yes (Hospitalization)
  Sender: FDA-Public Use
  Company Number: 2007SP001852

PATIENT
  Age: 63 Year
  Sex: Male

DRUGS (4)
  1. PEG-INTRON [Suspect]
     Indication: MALIGNANT MELANOMA
     Dosage: 100 MCG, QW; SC
     Route: 058
     Dates: start: 20050823
  2. ATENOLOL [Concomitant]
  3. PENTOXYPHYLLIN [Concomitant]
  4. TIMOLOL MALEATE [Concomitant]

REACTIONS (4)
  - FALL [None]
  - HEAD INJURY [None]
  - VERTIGO [None]
  - WHIPLASH INJURY [None]
